FAERS Safety Report 9508009 (Version 1)
Quarter: 2013Q1

REPORT INFORMATION
  Report Type: Spontaneous
  Country: US (occurrence: None)
  Receive Date: 20130305
  Receipt Date: 20130305
  Transmission Date: 20140127
  Serious: Yes (Hospitalization, Other)
  Sender: FDA-Public Use
  Company Number: 163-21880-12050152

PATIENT
  Age: 62 Year
  Sex: Female
  Weight: 90.72 kg

DRUGS (17)
  1. REVLIMID (LENALIDOMIDE) (CAPSULES) [Suspect]
     Indication: PLASMA CELL MYELOMA
     Dosage: 10 MG, 21 IN 21 D, PO?03/13/2012 - DISCONTINUED
     Route: 048
     Dates: start: 20120313
  2. CALCIUM +D(OS-CAL) [Concomitant]
  3. GABAPENTIN (GABAPENTIN) [Concomitant]
  4. KEPPRA (LEVETIRACETAM) [Concomitant]
  5. KLOR-CON M15 (POTASSIUM CHLORIDE) [Concomitant]
  6. MUCINEX (GUAIFENESIN) [Concomitant]
  7. VITAMINS [Concomitant]
  8. METOPROLOL (METOPROLOL) [Concomitant]
  9. GLUCOTROL XL (GLIPZIDE) [Concomitant]
  10. ACIDOPHILUS (LACTOBACILLUS ACIDOPHILUS) [Concomitant]
  11. NEXIUM [Concomitant]
  12. NORVASC (AMLODIPINE BESILATE) [Concomitant]
  13. OMEGA 3 (FISH OIL) [Concomitant]
  14. PREDNISOLONE (PREDNISOLONE) [Concomitant]
  15. TRIPLEX (VEGANN) [Concomitant]
  16. VALTREX (VALACICLOVIR HYDROCHLORIDE) [Concomitant]
  17. GLUCOPHAGE [Concomitant]

REACTIONS (7)
  - Red blood cell count decreased [None]
  - Dizziness [None]
  - Balance disorder [None]
  - Platelet count decreased [None]
  - Respiratory tract congestion [None]
  - Cough [None]
  - Plasma cell myeloma [None]
